FAERS Safety Report 5304426-3 (Version None)
Quarter: 2007Q2

REPORT INFORMATION
  Report Type: 
  Country: None (occurrence: None)
  Receive Date: 20070423
  Receipt Date: 20070409
  Transmission Date: 20071010
  Serious: Yes (Other)
  Sender: FDA-Public Use
  Company Number: IT-PFIZER INC-2007028051

PATIENT
  Age: 25 Year
  Sex: Female

DRUGS (4)
  1. DOXORUBICIN HYDROCHLORIDE POWDER, STERILE [Suspect]
     Indication: HODGKIN'S DISEASE
  2. BLEOMYCIN [Suspect]
     Indication: HODGKIN'S DISEASE
  3. VINBLASTINE SULFATE [Suspect]
     Indication: HODGKIN'S DISEASE
  4. DACARBAZINE [Suspect]
     Indication: HODGKIN'S DISEASE

REACTIONS (1)
  - CAROTID ARTERY THROMBOSIS [None]
